FAERS Safety Report 4396314-4 (Version None)
Quarter: 2004Q3

REPORT INFORMATION
  Report Type: 
  Country: None (occurrence: None)
  Receive Date: 20040713
  Receipt Date: 20040630
  Transmission Date: 20050211
  Serious: Yes (Life-Threatening, Hospitalization, Other)
  Sender: FDA-Public Use
  Company Number: RU-GLAXOSMITHKLINE-B0337927A

PATIENT
  Age: 59 Year
  Sex: Male
  Weight: 94 kg

DRUGS (3)
  1. SERETIDE [Suspect]
     Route: 055
     Dates: start: 20040429
  2. PREDNISOLONE [Concomitant]
     Route: 048
     Dates: start: 20020101
  3. VENTOLIN [Concomitant]
     Dates: start: 20020101

REACTIONS (7)
  - ASTHENIA [None]
  - BLOOD PRESSURE DECREASED [None]
  - COLONIC POLYP [None]
  - DIZZINESS [None]
  - FAECES DISCOLOURED [None]
  - INTESTINAL HAEMORRHAGE [None]
  - PALLOR [None]
